FAERS Safety Report 10479608 (Version 1)
Quarter: 2014Q3

REPORT INFORMATION
  Report Type: Spontaneous
  Country: US (occurrence: None)
  Receive Date: 20140925
  Receipt Date: 20140925
  Transmission Date: 20150326
  Serious: Yes (Other)
  Sender: FDA-Public Use
  Company Number: 2014HINLIT0827

PATIENT
  Age: 11 Year
  Sex: Female

DRUGS (7)
  1. STAVUDINE (STAVUDINE) UNKNOWN [Suspect]
     Active Substance: STAVUDINE
     Indication: HIV INFECTION
     Dosage: UNK UNKNOWN
  2. LAMIVUDINE (LAMIVUDINE) UNKNOWN [Suspect]
     Active Substance: LAMIVUDINE
     Indication: HIV INFECTION
     Dosage: UNK, UNKNOWN
  3. FTC (EMTRICITABINE) (FTC (EMTRICITABINE)) [Concomitant]
  4. DIDANOSINE (DIDANOSINE) [Concomitant]
  5. LOPINAVIR+RITONAVIR [Suspect]
     Active Substance: LOPINAVIR\RITONAVIR
     Indication: HIV INFECTION
     Dosage: RTV, 133MG, UNKNOWN
  6. FLUTICASONE PROPIONATE. [Suspect]
     Active Substance: FLUTICASONE PROPIONATE
     Indication: PRODUCT USED FOR UNKNOWN INDICATION
     Dosage: 220, UNKNOWN DURATION 183 DAYS
  7. EFV (EFAVIRENZ) (EFV (EFAVIRENZ)) [Concomitant]

REACTIONS (2)
  - Cushing^s syndrome [None]
  - Drug interaction [None]
